FAERS Safety Report 6227424-4 (Version None)
Quarter: 2009Q2

REPORT INFORMATION
  Report Type: 
  Country: None (occurrence: None)
  Receive Date: 20090612
  Receipt Date: 20090602
  Transmission Date: 20091009
  Serious: Yes (Other)
  Sender: FDA-Public Use
  Company Number: PHHY2009CA17172

PATIENT

DRUGS (3)
  1. DIOVAN T30230++HY [Suspect]
     Indication: HYPERTENSION
     Dosage: UNK
  2. DIURETICS [Concomitant]
  3. BETA BLOCKING AGENTS [Concomitant]

REACTIONS (1)
  - ATRIAL FLUTTER [None]
